FAERS Safety Report 9659651 (Version 1)
Quarter: 2013Q4

REPORT INFORMATION
  Report Type: Spontaneous
  Country: US (occurrence: US)
  Receive Date: 20131031
  Receipt Date: 20131031
  Transmission Date: 20140711
  Serious: Yes (Other)
  Sender: FDA-Public Use
  Company Number: US-PERRIGO-13US010886

PATIENT
  Sex: Male
  Weight: 86.17 kg

DRUGS (3)
  1. TOLNAFTATE 1% 154 [Suspect]
     Indication: PRURITUS
     Dosage: THIN LAYER, AS NEEDED
     Route: 061
     Dates: start: 2007, end: 201012
  2. TOLNAFTATE 1% 154 [Suspect]
     Indication: ACCIDENTAL EXPOSURE TO PRODUCT
     Dosage: 1 SPRAY, ONCE
     Route: 061
     Dates: start: 201003, end: 201003
  3. TOLNAFTATE 1% 154 [Suspect]
     Dosage: THIN LAYER, AS NEEDED
     Route: 061
     Dates: start: 201012

REACTIONS (4)
  - Malignant melanoma [Recovered/Resolved]
  - Sensory disturbance [Not Recovered/Not Resolved]
  - Ear congestion [Not Recovered/Not Resolved]
  - Drug administration error [Recovered/Resolved]
